FAERS Safety Report 19421806 (Version 3)
Quarter: 2021Q3

REPORT INFORMATION
  Report Type: Report from Study
  Country: None (occurrence: MX)
  Receive Date: 20210616
  Receipt Date: 20210826
  Transmission Date: 20211014
  Serious: Yes (Other)
  Sender: FDA-Public Use
  Company Number: MX-ABBVIE-21K-107-3948076-00

PATIENT
  Age: 72 Year
  Sex: Male
  Weight: 99 kg

DRUGS (5)
  1. BISOPROLOL [Suspect]
     Active Substance: BISOPROLOL
     Indication: HYPERTENSION
     Route: 065
  2. METHOTREXATE. [Suspect]
     Active Substance: METHOTREXATE
     Indication: PRODUCT USED FOR UNKNOWN INDICATION
     Route: 065
     Dates: end: 202103
  3. HUMIRA [Suspect]
     Active Substance: ADALIMUMAB
     Route: 058
     Dates: start: 202103
  4. MALIVAL AP [Suspect]
     Active Substance: INDOMETHACIN
     Indication: PRODUCT USED FOR UNKNOWN INDICATION
     Route: 065
  5. HUMIRA [Suspect]
     Active Substance: ADALIMUMAB
     Indication: ANKYLOSING SPONDYLITIS
     Route: 058
     Dates: start: 202102, end: 202103

REACTIONS (4)
  - Arthralgia [Recovering/Resolving]
  - Gastrointestinal haemorrhage [Recovered/Resolved]
  - Diverticulum intestinal [Recovering/Resolving]
  - Large intestinal haemorrhage [Unknown]

NARRATIVE: CASE EVENT DATE: 2021
